FAERS Safety Report 7379915-0 (Version None)
Quarter: 2011Q1

REPORT INFORMATION
  Report Type: 
  Country: None (occurrence: None)
  Receive Date: 20110329
  Receipt Date: 20110322
  Transmission Date: 20110831
  Serious: Yes (Death, Life-Threatening, Hospitalization)
  Sender: FDA-Public Use
  Company Number: AU-CELGENEUS-008-C5013-11022795

PATIENT
  Sex: Male
  Weight: 72 kg

DRUGS (33)
  1. CC-5013\PLACEBO [Suspect]
     Dosage: 20 MILLIGRAM
     Route: 048
     Dates: start: 20110216, end: 20110221
  2. DOCETAXEL [Suspect]
     Indication: PROSTATE CANCER
     Dosage: 148 MILLIGRAM
     Route: 065
     Dates: start: 20101215
  3. BONEFOS [Concomitant]
     Dosage: 1 TABLET
     Route: 048
     Dates: start: 20090101, end: 20110222
  4. GENTAMICIN [Concomitant]
     Indication: INFECTION
     Dosage: 240 MILLIGRAM
     Route: 051
     Dates: start: 20110223, end: 20110227
  5. GENTAMICIN [Concomitant]
     Route: 051
     Dates: start: 20110312, end: 20110312
  6. XYLOCAINE VISCOUS [Concomitant]
     Dosage: 20 MILLILITER
     Route: 048
     Dates: start: 20110302, end: 20110311
  7. SANDOZ PHOSPHATE [Concomitant]
     Indication: HYPOPHOSPHATAEMIA
     Dosage: 8 TABLET
     Route: 048
     Dates: start: 20110302, end: 20110302
  8. POTASSIUM PHOSPHATES [Concomitant]
     Dosage: 10 AN 10 IN 500ML N/S
     Route: 051
     Dates: start: 20110303, end: 20110305
  9. POTASSIUM PHOSPHATES [Concomitant]
  10. ZOLADEX [Concomitant]
     Indication: PROSTATE CANCER
     Dosage: .12 MILLIGRAM
     Route: 058
     Dates: start: 20051001
  11. POTASSIUM [Concomitant]
     Dosage: 5400 MILLIGRAM
     Route: 048
     Dates: start: 20110223, end: 20110226
  12. CALTRATE [Concomitant]
     Route: 048
     Dates: start: 20110224, end: 20110227
  13. CALTRATE [Concomitant]
     Dosage: 2400 MILLIGRAM
     Route: 048
     Dates: start: 20110227, end: 20110313
  14. SODIUM BICARBONATE [Concomitant]
     Route: 061
     Dates: start: 20110225, end: 20110311
  15. RED BLOOD CELLS [Concomitant]
     Dosage: 250-300ML
     Route: 051
     Dates: start: 20110223, end: 20110223
  16. CC-5013\PLACEBO [Suspect]
     Indication: PROSTATE CANCER
     Dosage: 25 MILLIGRAM
     Route: 048
     Dates: start: 20101216
  17. ANTITHROMBOTIC AGENT [Concomitant]
     Route: 065
  18. PARACETAMOL [Concomitant]
     Route: 051
     Dates: start: 20110223, end: 20110223
  19. SANDOZ PHOSPHATE [Concomitant]
     Dosage: 2 TABLET
     Route: 048
     Dates: start: 20110306, end: 20110306
  20. RED BLOOD CELLS [Concomitant]
     Dosage: 250-300ML
     Route: 051
     Dates: start: 20110303, end: 20110301
  21. XYLOCAINE VISCOUS [Concomitant]
     Route: 002
     Dates: start: 20110223, end: 20110227
  22. DEXAMETHASONE [Concomitant]
     Indication: PROSTATE CANCER
     Dosage: 8 MILLIGRAM
     Route: 048
     Dates: start: 20110305, end: 20110310
  23. CALCIUM GLUCONATE [Concomitant]
     Dosage: 10MLS DILUTED IN 100MLS N/SALINE
     Route: 051
     Dates: start: 20110227, end: 20110302
  24. NEUROFEN [Concomitant]
     Indication: BACK PAIN
     Route: 048
     Dates: start: 20101220, end: 20110223
  25. PREDNISONE [Suspect]
     Indication: PROSTATE CANCER
     Dosage: 10 MILLIGRAM
     Route: 065
     Dates: start: 20101215
  26. UDDER CREAM [Concomitant]
     Dosage: ANY AMOUNT
     Route: 061
     Dates: start: 20110303
  27. MICROLAX ENEMA [Concomitant]
     Indication: CONSTIPATION
     Route: 054
     Dates: start: 20110311, end: 20110312
  28. DOCETAXEL [Suspect]
     Dosage: 140 MILLIGRAM
     Route: 065
     Dates: start: 20110216, end: 20110216
  29. RANITIDINE [Concomitant]
     Indication: PROPHYLAXIS
     Dosage: 14.2857 MILLIGRAM
     Route: 048
     Dates: start: 20101215, end: 20110216
  30. POTASSIUM [Concomitant]
     Dosage: 4800 MILLIGRAM
     Route: 048
     Dates: start: 20110226, end: 20110228
  31. PREDNISONE [Suspect]
     Dosage: 10 MILLIGRAM
     Route: 065
     Dates: start: 20110216, end: 20110303
  32. NILSTAT [Concomitant]
     Indication: ORAL CANDIDIASIS
     Dosage: 4 MILLILITER
     Route: 048
     Dates: start: 20110225, end: 20110312
  33. ALBUMIN (HUMAN) [Concomitant]
     Dosage: 100 MILLILITER
     Route: 051
     Dates: start: 20110225, end: 20110311

REACTIONS (4)
  - WOUND INFECTION [None]
  - SKIN EXFOLIATION [None]
  - SEPSIS [None]
  - FEBRILE NEUTROPENIA [None]
